FAERS Safety Report 9210350 (Version 1)
Quarter: 2013Q2

REPORT INFORMATION
  Report Type: Spontaneous
  Country: US (occurrence: US)
  Receive Date: 20130404
  Receipt Date: 20130404
  Transmission Date: 20140414
  Serious: Yes (Other)
  Sender: FDA-Public Use
  Company Number: US-PFIZER INC-2013102151

PATIENT
  Age: 47 Year
  Sex: Female
  Weight: 68.03 kg

DRUGS (2)
  1. LEVOXYL [Suspect]
     Dosage: 75 UG, UNK
     Route: 048
  2. ZINC [Suspect]
     Indication: SUPPLEMENTATION THERAPY
     Dosage: 50 MG, 1X/DAY
     Route: 048
     Dates: start: 20121115, end: 20130225

REACTIONS (3)
  - Anxiety [Unknown]
  - Dizziness [Recovering/Resolving]
  - Weight decreased [Unknown]
